FAERS Safety Report 10289018 (Version 2)
Quarter: 2015Q1

REPORT INFORMATION
  Report Type: Spontaneous
  Country: CA (occurrence: CA)
  Receive Date: 20140710
  Receipt Date: 20150209
  Transmission Date: 20150720
  Serious: Yes (Other)
  Sender: FDA-Public Use
  Company Number: CA-ROCHE-1431664

PATIENT
  Age: 56 Year
  Sex: Female

DRUGS (18)
  1. CRESTOR [Concomitant]
     Active Substance: ROSUVASTATIN CALCIUM
     Route: 065
  2. ELTROXIN [Concomitant]
     Active Substance: LEVOTHYROXINE
     Route: 065
  3. EZETROL [Concomitant]
     Active Substance: EZETIMIBE
     Route: 065
  4. METHYLPREDNISOLONE. [Suspect]
     Active Substance: METHYLPREDNISOLONE
     Indication: PRODUCT USED FOR UNKNOWN INDICATION
     Route: 065
  5. ALTACE [Concomitant]
     Active Substance: RAMIPRIL
     Route: 065
  6. APO-HYDRO [Concomitant]
     Active Substance: HYDROCHLOROTHIAZIDE
     Route: 065
  7. PREDNISONE. [Concomitant]
     Active Substance: PREDNISONE
     Route: 065
  8. RITUXAN [Suspect]
     Active Substance: RITUXIMAB
     Indication: PRODUCT USED FOR UNKNOWN INDICATION
     Route: 042
  9. DIAMICRON [Suspect]
     Active Substance: GLICLAZIDE
     Indication: DIABETES MELLITUS
     Route: 065
  10. LANTUS [Suspect]
     Active Substance: INSULIN GLARGINE
     Indication: DIABETES MELLITUS
     Route: 058
  11. NORVASC [Concomitant]
     Active Substance: AMLODIPINE BESYLATE
     Route: 065
  12. LYRICA [Suspect]
     Active Substance: PREGABALIN
     Indication: PRODUCT USED FOR UNKNOWN INDICATION
     Route: 065
  13. SYNTHROID [Concomitant]
     Active Substance: LEVOTHYROXINE SODIUM
  14. LEVEMIR [Concomitant]
     Active Substance: INSULIN DETEMIR
     Route: 058
  15. JANUVIA [Concomitant]
     Active Substance: SITAGLIPTIN PHOSPHATE
     Route: 065
  16. DOMPERIDONE [Suspect]
     Active Substance: DOMPERIDONE
     Indication: PRODUCT USED FOR UNKNOWN INDICATION
     Route: 065
  17. NEXIUM [Suspect]
     Active Substance: ESOMEPRAZOLE MAGNESIUM
     Indication: PRODUCT USED FOR UNKNOWN INDICATION
     Route: 048
  18. ERGOCALCIFEROL. [Concomitant]
     Active Substance: ERGOCALCIFEROL

REACTIONS (2)
  - Arthritis [Unknown]
  - Vascular occlusion [Unknown]
